FAERS Safety Report 9911379 (Version 1)
Quarter: 2014Q1

REPORT INFORMATION
  Report Type: Spontaneous
  Country: FR (occurrence: FR)
  Receive Date: 20140219
  Receipt Date: 20140219
  Transmission Date: 20141002
  Serious: Yes (Hospitalization)
  Sender: FDA-Public Use
  Company Number: FR-GILEAD-2014-0094816

PATIENT
  Age: 72 Year
  Sex: Female

DRUGS (8)
  1. AMBRISENTAN [Suspect]
     Indication: PULMONARY ARTERIAL HYPERTENSION
     Dosage: 1TAB PER DAY
     Route: 048
     Dates: start: 2010
  2. REVATIO [Suspect]
     Indication: PULMONARY ARTERIAL HYPERTENSION
     Dosage: 3UNIT PER DAY
     Route: 048
     Dates: start: 2007
  3. CACIT /07357001/ [Suspect]
     Indication: MINERAL DEFICIENCY
     Dosage: 1UNIT PER DAY
     Route: 048
     Dates: start: 2009
  4. LASILIX /00032601/ [Suspect]
     Indication: HYPERTENSION
     Dosage: 1.5UNIT PER DAY
     Route: 048
     Dates: start: 2004
  5. DIFFU K [Suspect]
     Indication: MINERAL DEFICIENCY
     Dosage: 5 DF, QD
     Route: 048
     Dates: start: 2005
  6. PREVISCAN /00261401/ [Suspect]
     Indication: PULMONARY ARTERIAL HYPERTENSION
     Dosage: 2.75 DF, QD
     Route: 048
     Dates: start: 2004
  7. LEVOTHYROX [Suspect]
     Indication: THYROID DISORDER
     Dosage: 62.5MCG PER DAY
     Route: 048
     Dates: start: 2004
  8. INEXIUM /01479302/ [Suspect]
     Indication: PRODUCT USED FOR UNKNOWN INDICATION
     Dosage: UNK
     Route: 048
     Dates: start: 2013, end: 201401

REACTIONS (1)
  - Neutropenia [Recovering/Resolving]
